FAERS Safety Report 8529686-7 (Version None)
Quarter: 2012Q3

REPORT INFORMATION
  Report Type: 
  Country: None (occurrence: None)
  Receive Date: 20120710
  Receipt Date: 20120529
  Transmission Date: 20120928
  Serious: Yes (Other)
  Sender: FDA-Public Use
  Company Number: CO-002610

PATIENT
  Age: 8 Year
  Sex: Male

DRUGS (1)
  1. NAGLAZYME [Suspect]
     Indication: MUCOPOLYSACCHARIDOSIS VI
     Dosage: (15 MG 1X/WEEK INTRAVENOUS DRIP)
     Route: 041
     Dates: start: 20080711

REACTIONS (3)
  - HEPATOSPLENOMEGALY [None]
  - ABDOMINAL PAIN [None]
  - HEPATITIS [None]
